FAERS Safety Report 7598356-4 (Version None)
Quarter: 2011Q3

REPORT INFORMATION
  Report Type: 
  Country: None (occurrence: None)
  Receive Date: 20110708
  Receipt Date: 20110630
  Transmission Date: 20111222
  Serious: Yes (Other)
  Sender: FDA-Public Use
  Company Number: PHHY2011US49861

PATIENT
  Sex: Female

DRUGS (6)
  1. ZADITOR [Suspect]
     Dosage: UNK UKN, UNK
  2. PRILOSEC [Concomitant]
     Dosage: UNK UKN, UNK
  3. ZADITOR [Suspect]
     Dosage: UNK UKN, UNK
  4. BENADRYL ^WARNER-LAMBERT^               /USA/ [Concomitant]
     Dosage: UNK UKN, UNK
  5. ZADITOR [Suspect]
     Indication: EYE PRURITUS
     Dosage: UNK UKN, UNK
  6. CINNAMON [Concomitant]
     Dosage: UNK UKN, UNK

REACTIONS (5)
  - EYE PRURITUS [None]
  - EXPIRED DRUG ADMINISTERED [None]
  - BLOOD GLUCOSE DECREASED [None]
  - DYSPEPSIA [None]
  - ASTHENIA [None]
